FAERS Safety Report 13756323 (Version 3)
Quarter: 2017Q3

REPORT INFORMATION
  Report Type: Spontaneous
  Country: US (occurrence: US)
  Receive Date: 20170714
  Receipt Date: 20170817
  Transmission Date: 20171127
  Serious: Yes (Hospitalization, Other)
  Sender: FDA-Public Use
  Company Number: US-SAOL THERAPEUTICS-0701251316

PATIENT
  Age: 34 Year
  Sex: Female

DRUGS (7)
  1. MORPHINE [Suspect]
     Active Substance: MORPHINE
     Dosage: 8.502 MG, \DAY
     Route: 037
  2. BACLOFEN. [Suspect]
     Active Substance: BACLOFEN
     Indication: MUSCLE SPASTICITY
     Dosage: 255.07 ?G, \DAY
     Route: 037
  3. MORPHINE [Suspect]
     Active Substance: MORPHINE
     Dosage: UNK
     Route: 037
  4. DIAZEPAM. [Suspect]
     Active Substance: DIAZEPAM
     Route: 048
  5. BACLOFEN. [Suspect]
     Active Substance: BACLOFEN
     Indication: MOVEMENT DISORDER
  6. TRAMADOL. [Suspect]
     Active Substance: TRAMADOL
     Route: 048
  7. BUPIVACAINE. [Suspect]
     Active Substance: BUPIVACAINE
     Dosage: 17.005 MG, \DAY
     Route: 037

REACTIONS (12)
  - Malaise [Unknown]
  - Overdose [Unknown]
  - Multiple sclerosis relapse [Unknown]
  - Sensitivity to weather change [Unknown]
  - Pain [Not Recovered/Not Resolved]
  - Device failure [Recovered/Resolved]
  - Respiratory arrest [Unknown]
  - Arthritis [Unknown]
  - Incorrect drug administration rate [Unknown]
  - Drug dependence [Unknown]
  - Drug withdrawal syndrome [Unknown]
  - Muscle spasticity [Recovering/Resolving]

NARRATIVE: CASE EVENT DATE: 20060809
